FAERS Safety Report 25312115 (Version 1)
Quarter: 2025Q2

REPORT INFORMATION
  Report Type: Spontaneous
  Country: US (occurrence: US)
  Receive Date: 20250510
  Receipt Date: 20250510
  Transmission Date: 20250717
  Serious: Yes (Hospitalization, Other)
  Sender: NOVO NORDISK
  Company Number: US-NOVOPROD-1365185

PATIENT
  Age: 49 Year
  Sex: Male
  Weight: 104.31 kg

DRUGS (7)
  1. OZEMPIC [Suspect]
     Active Substance: SEMAGLUTIDE
     Indication: Type 2 diabetes mellitus
     Dosage: 0.5 MG, QW
     Dates: start: 20201002, end: 2020
  2. OZEMPIC [Suspect]
     Active Substance: SEMAGLUTIDE
     Indication: Type 2 diabetes mellitus
     Dosage: 1 MG, QW
     Dates: start: 20210418
  3. OZEMPIC [Suspect]
     Active Substance: SEMAGLUTIDE
     Indication: Type 2 diabetes mellitus
     Dosage: 2 MG, QW
  4. INSULIN NOS [Concomitant]
     Active Substance: INSULIN NOS
     Indication: Type 2 diabetes mellitus
     Dates: start: 20160101
  5. MOUNJARO [Concomitant]
     Active Substance: TIRZEPATIDE
     Indication: Type 2 diabetes mellitus
     Dosage: 10 MG, QW
     Dates: start: 20240408, end: 20240520
  6. MOUNJARO [Concomitant]
     Active Substance: TIRZEPATIDE
     Dosage: 12.5 MG, QW
     Dates: start: 20240613, end: 20240801
  7. MOUNJARO [Concomitant]
     Active Substance: TIRZEPATIDE
     Dosage: 15 MG, QW
     Dates: start: 20240815

REACTIONS (5)
  - Gallbladder injury [Recovered/Resolved]
  - Cholecystitis [Recovered/Resolved]
  - Anxiety [Unknown]
  - Constipation [Recovered/Resolved]
  - Off label use [Unknown]

NARRATIVE: CASE EVENT DATE: 20201002
